FAERS Safety Report 8335501-7 (Version None)
Quarter: 2012Q2

REPORT INFORMATION
  Report Type: 
  Country: None (occurrence: None)
  Receive Date: 20120503
  Receipt Date: 20120423
  Transmission Date: 20120825
  Serious: Yes (Hospitalization, Other)
  Sender: FDA-Public Use
  Company Number: ES-BAXTER-2012BAX003700

PATIENT
  Sex: Male

DRUGS (2)
  1. ADVATE [Suspect]
     Route: 065
  2. ADVATE [Suspect]

REACTIONS (2)
  - FACTOR VIII INHIBITION [None]
  - DRUG INEFFECTIVE [None]
